FAERS Safety Report 7228985-9 (Version None)
Quarter: 2011Q1

REPORT INFORMATION
  Report Type: 
  Country: None (occurrence: None)
  Receive Date: 20110117
  Receipt Date: 20110112
  Transmission Date: 20110831
  Serious: Yes (Hospitalization, Other)
  Sender: FDA-Public Use
  Company Number: US-BAYER-2011-004158

PATIENT
  Sex: Female

DRUGS (1)
  1. MIRENA [Suspect]
     Indication: CONTRACEPTION
     Dosage: UNK
     Route: 015
     Dates: start: 20101217, end: 20101226

REACTIONS (5)
  - VOMITING [None]
  - PERITONITIS [None]
  - PELVIC PAIN [None]
  - NAUSEA [None]
  - PYREXIA [None]
